FAERS Safety Report 15763302 (Version 1)
Quarter: 2018Q4

REPORT INFORMATION
  Report Type: Spontaneous
  Country: DK (occurrence: DK)
  Receive Date: 20181227
  Receipt Date: 20181227
  Transmission Date: 20190205
  Serious: Yes (Hospitalization)
  Sender: FDA-Public Use
  Company Number: DK-009507513-1812DNK009341

PATIENT
  Age: 64 Year
  Sex: Male
  Weight: 89 kg

DRUGS (10)
  1. SIMVASTATIN KRKA [Concomitant]
     Active Substance: SIMVASTATIN
     Indication: CARDIOVASCULAR EVENT PROPHYLAXIS
     Dosage: 40 MILLIGRAM, QD
     Route: 048
  2. LOSARTAN POTASSIUM AND HYDROCHLOROTHIAZIDE [Suspect]
     Active Substance: HYDROCHLOROTHIAZIDE\LOSARTAN POTASSIUM
     Indication: HYPERTENSION
     Dosage: STRENGTH: 100+25 MG
     Route: 048
     Dates: end: 20181126
  3. NOVOMIX 30 [Concomitant]
     Active Substance: INSULIN ASPART
     Indication: TYPE 2 DIABETES MELLITUS
     Dosage: STRENGTH: 100 INTERNATIONAL UNITS/ML, DOSE: 17 UNITS MORNING AND 14 UNITS IN THE EVENING
     Dates: start: 201611
  4. BETOLVEX [Concomitant]
     Active Substance: CYANOCOBALAMIN
     Indication: VITAMIN B12 DEFICIENCY
     Dosage: 1 MILLIGRAM, QD
     Route: 048
     Dates: start: 201412
  5. VICTOZA [Concomitant]
     Active Substance: LIRAGLUTIDE
     Indication: TYPE 2 DIABETES MELLITUS
     Dosage: 1.8 MILLIGRAM, QD, STRENGTH 6 MG/MILLILITER
     Dates: start: 201602
  6. ZOPICLONE [Concomitant]
     Active Substance: ZOPICLONE
     Indication: INSOMNIA
     Dosage: 1 TABLET IN THE EVENING, SPLIT INTO QUARTERS
     Route: 048
     Dates: start: 201203
  7. AMLODIPIN ACTAVIS (AMLODIPINE MESYLATE) [Concomitant]
     Indication: HYPERTENSION
     Dosage: 10 MILLIGRAM, QD
     Route: 048
  8. FINASTERIDE. [Concomitant]
     Active Substance: FINASTERIDE
     Indication: DYSURIA
     Dosage: 5 MILLIGRAM, QD
     Route: 048
     Dates: start: 201610
  9. CIALIS [Concomitant]
     Active Substance: TADALAFIL
     Indication: ERECTILE DYSFUNCTION
     Dosage: 5 MILLIGRAM, QD
     Route: 048
     Dates: start: 201503
  10. METFORMIN BLUEFISH [Concomitant]
     Active Substance: METFORMIN HYDROCHLORIDE
     Indication: TYPE 2 DIABETES MELLITUS
     Dosage: 2000 MILLIGRAM, QD
     Route: 048
     Dates: start: 201412

REACTIONS (4)
  - Skin wound [Recovered/Resolved]
  - Impaired healing [Recovered/Resolved]
  - Squamous cell carcinoma of skin [Recovered/Resolved with Sequelae]
  - Cancer surgery [Recovered/Resolved]

NARRATIVE: CASE EVENT DATE: 201805
